FAERS Safety Report 5754713-X (Version None)
Quarter: 2008Q2

REPORT INFORMATION
  Report Type: 
  Country: None (occurrence: None)
  Receive Date: 20080530
  Receipt Date: 20080519
  Transmission Date: 20081010
  Serious: Yes (Other)
  Sender: FDA-Public Use
  Company Number: US-PFIZER INC-2008043974

PATIENT
  Age: 61 Year
  Sex: Female

DRUGS (10)
  1. LYRICA [Suspect]
     Indication: NEUROPATHY PERIPHERAL
  2. DILTIAZEM [Concomitant]
  3. PLAVIX [Concomitant]
  4. LEXAPRO [Concomitant]
  5. LISINOPRIL [Concomitant]
  6. HYDROCHLOROTHIAZIDE [Concomitant]
  7. CRESTOR [Concomitant]
  8. PROTONIX [Concomitant]
  9. ZETIA [Concomitant]
  10. ZANAFLEX [Concomitant]

REACTIONS (2)
  - DYSPNOEA EXERTIONAL [None]
  - GENERALISED OEDEMA [None]
